FAERS Safety Report 23817016 (Version 1)
Quarter: 2024Q2

REPORT INFORMATION
  Report Type: Spontaneous
  Country: SD (occurrence: SD)
  Receive Date: 20240504
  Receipt Date: 20240504
  Transmission Date: 20240716
  Serious: Yes (Hospitalization)
  Sender: FDA-Public Use
  Company Number: SD-MACLEODS PHARMA-MAC2024047081

PATIENT
  Age: 51 Year
  Sex: Male

DRUGS (3)
  1. ARIPIPRAZOLE [Suspect]
     Active Substance: ARIPIPRAZOLE
     Indication: Schizoaffective disorder
     Route: 048
  2. ARIPIPRAZOLE [Suspect]
     Active Substance: ARIPIPRAZOLE
     Route: 048
  3. ARIPIPRAZOLE [Suspect]
     Active Substance: ARIPIPRAZOLE
     Dosage: 400 MG DEPOT
     Route: 065

REACTIONS (1)
  - Neuroleptic malignant syndrome [Recovered/Resolved]
